FAERS Safety Report 24224742 (Version 2)
Quarter: 2024Q3

REPORT INFORMATION
  Report Type: Report from Study
  Country: ZA (occurrence: ZA)
  Receive Date: 20240819
  Receipt Date: 20240917
  Transmission Date: 20241016
  Serious: Yes (Other)
  Sender: NOVARTIS
  Company Number: ZA-002147023-NVSC2024ZA167279

PATIENT
  Age: 38 Year
  Sex: Female

DRUGS (1)
  1. OFATUMUMAB [Suspect]
     Active Substance: OFATUMUMAB
     Indication: Multiple sclerosis
     Dosage: 20 MG, QMO
     Route: 058
     Dates: start: 20240726

REACTIONS (1)
  - Dysmenorrhoea [Not Recovered/Not Resolved]
